FAERS Safety Report 14802811 (Version 2)
Quarter: 2018Q2

REPORT INFORMATION
  Report Type: Spontaneous
  Country: US (occurrence: US)
  Receive Date: 20180424
  Receipt Date: 20180427
  Transmission Date: 20180711
  Serious: Yes (Other)
  Sender: FDA-Public Use
  Company Number: US-PFIZER INC-2018165888

PATIENT
  Age: 54 Year
  Sex: Male

DRUGS (2)
  1. GENTAMICIN SULFATE. [Suspect]
     Active Substance: GENTAMICIN SULFATE
     Indication: WOUND INFECTION
     Dosage: 100 MG, 3X/DAY, (EVERY EIGHT HOURS)
     Route: 042
  2. CEFAZOLIN [Suspect]
     Active Substance: CEFAZOLIN
     Indication: WOUND INFECTION
     Dosage: 1 G, 3X/DAY,(EVERY EIGHT HOURS)
     Route: 042

REACTIONS (2)
  - Blood lactate dehydrogenase increased [Recovered/Resolved]
  - Acute kidney injury [Recovered/Resolved]
